FAERS Safety Report 18103616 (Version 2)
Quarter: 2020Q3

REPORT INFORMATION
  Report Type: Spontaneous
  Country: SK (occurrence: SK)
  Receive Date: 20200803
  Receipt Date: 20200813
  Transmission Date: 20201103
  Serious: Yes (Hospitalization, Other)
  Sender: FDA-Public Use
  Company Number: SK-IGSA-BIG0010822

PATIENT
  Age: 30 Year
  Sex: Female

DRUGS (8)
  1. NADROPARIN CALCIUM [Suspect]
     Active Substance: NADROPARIN CALCIUM
     Indication: DIABETIC NEPHROPATHY
     Dosage: 0.4 ML
     Route: 058
  2. EPOETIN THETA [Concomitant]
     Active Substance: ERYTHROPOIETIN
     Indication: RESPIRATORY TRACT INFECTION
     Route: 065
  3. HUMAN SERUM ALBUMIN [Suspect]
     Active Substance: ALBUMIN HUMAN
     Indication: HYPOALBUMINAEMIA
     Dosage: 100 MILLILITER, QD
     Route: 042
  4. FUROSEMIDE. [Suspect]
     Active Substance: FUROSEMIDE
     Indication: DIABETIC NEPHROPATHY
     Dosage: 10 MILLIGRAM, QD
     Route: 065
  5. METHYLDOPA. [Suspect]
     Active Substance: METHYLDOPA
     Indication: DIABETIC NEPHROPATHY
     Route: 065
  6. MAGNESIUM LACTICUM [Suspect]
     Active Substance: MAGNESIUM LACTATE
     Indication: DIABETIC NEUROPATHY
     Route: 065
  7. AMLODIPINE [Suspect]
     Active Substance: AMLODIPINE BESYLATE
     Indication: DIABETIC NEPHROPATHY
     Route: 065
  8. INSULIN [Suspect]
     Active Substance: INSULIN NOS
     Indication: DIABETIC NEPHROPATHY
     Route: 064

REACTIONS (5)
  - Disease progression [Not Recovered/Not Resolved]
  - Premature baby [Unknown]
  - Blood pressure increased [Unknown]
  - Low birth weight baby [Unknown]
  - Maternal exposure during pregnancy [Unknown]
